FAERS Safety Report 4854201-9 (Version None)
Quarter: 2005Q4

REPORT INFORMATION
  Report Type: 
  Country: None (occurrence: None)
  Receive Date: 20051213
  Receipt Date: 20051130
  Transmission Date: 20060501
  Serious: Yes (Hospitalization, Other)
  Sender: FDA-Public Use
  Company Number: 2005162512

PATIENT
  Age: 43 Year
  Sex: Male
  Weight: 154.223 kg

DRUGS (2)
  1. VIAGRA [Suspect]
     Indication: ERECTILE DYSFUNCTION
     Dates: start: 20040801, end: 20050101
  2. UNIVASC [Concomitant]

REACTIONS (6)
  - BACK INJURY [None]
  - DIFFICULTY IN WALKING [None]
  - HEADACHE [None]
  - NERVE INJURY [None]
  - VISION BLURRED [None]
  - WEIGHT INCREASED [None]
